FAERS Safety Report 18785894 (Version 1)
Quarter: 2021Q1

REPORT INFORMATION
  Report Type: Spontaneous
  Country: EG (occurrence: EG)
  Receive Date: 20210125
  Receipt Date: 20210125
  Transmission Date: 20210419
  Serious: Yes (Life-Threatening, Other)
  Sender: FDA-Public Use
  Company Number: EG-SA-2021SA022702

PATIENT
  Age: 50 Year
  Sex: Female

DRUGS (6)
  1. REMDESIVIR. [Suspect]
     Active Substance: REMDESIVIR
     Dosage: 200 MG, 1X
     Route: 042
     Dates: start: 20201211, end: 20201211
  2. VITAMIN C [Concomitant]
     Active Substance: ASCORBIC ACID
     Dosage: 1 G, QD
     Route: 048
     Dates: start: 20201207, end: 20201215
  3. ZINC. [Concomitant]
     Active Substance: ZINC
     Dosage: 50 MG, QD
     Route: 048
     Dates: start: 20201207, end: 20201215
  4. CLEXANE [Suspect]
     Active Substance: ENOXAPARIN SODIUM
     Dosage: 60 MG, BID
     Route: 058
     Dates: start: 20201210, end: 20201214
  5. REMDESIVIR. [Suspect]
     Active Substance: REMDESIVIR
     Dosage: 100 MG, QD
     Route: 042
     Dates: start: 20201212, end: 20201215
  6. CEFEPIME [Concomitant]
     Active Substance: CEFEPIME HYDROCHLORIDE
     Dosage: 1 G, BID
     Route: 042
     Dates: start: 20201207, end: 20201213

REACTIONS (2)
  - Vaginal haemorrhage [Unknown]
  - COVID-19 [Unknown]

NARRATIVE: CASE EVENT DATE: 20201214
